FAERS Safety Report 4412383-7 (Version None)
Quarter: 2004Q2

REPORT INFORMATION
  Report Type: 
  Country: None (occurrence: None)
  Receive Date: 20040630
  Receipt Date: 20040330
  Transmission Date: 20050107
  Serious: No
  Sender: FDA-Public Use
  Company Number: 04P-163-0255465-00

PATIENT
  Age: 64 Year
  Sex: Male
  Weight: 72.5755 kg

DRUGS (6)
  1. HUMIRA [Suspect]
     Indication: RHEUMATOID ARTHRITIS
     Dosage: 40 MG, 1 IN 2 WK SUBCUTANEOUS
     Route: 058
     Dates: start: 20030901
  2. ASPIRIN TAB [Concomitant]
  3. METOPROLOL [Concomitant]
  4. PREDNISONE [Concomitant]
  5. AVANDRA [Concomitant]
  6. ISOSORBIDE MONONITRATE [Concomitant]

REACTIONS (1)
  - INJECTION SITE HAEMORRHAGE [None]
